FAERS Safety Report 9355151 (Version 4)
Quarter: 2013Q4

REPORT INFORMATION
  Report Type: Report from Study
  Country: DE (occurrence: DE)
  Receive Date: 20130619
  Receipt Date: 20131105
  Transmission Date: 20140711
  Serious: Yes (Death)
  Sender: FDA-Public Use
  Company Number: PHHY2013DE059293

PATIENT
  Age: 66 Year
  Sex: Female
  Weight: 40 kg

DRUGS (6)
  1. AMN107 [Suspect]
     Indication: CHRONIC MYELOID LEUKAEMIA
     Dosage: 600 MG/DAY
     Route: 048
     Dates: start: 20120511
  2. AMN107 [Suspect]
     Dosage: 600 MG/DAY
     Route: 048
  3. AMN107 [Suspect]
     Dosage: 600 MG/DAY
     Route: 048
     Dates: start: 20120823, end: 20121103
  4. SANDOSTATIN [Suspect]
     Indication: NEUROENDOCRINE TUMOUR
     Dosage: 0.5 MG/ML, MORNING
     Route: 058
     Dates: start: 20120716, end: 20120821
  5. SANDOSTATIN [Suspect]
     Dosage: 0.5 MG/ML, MORNING AND EVENING
     Route: 058
     Dates: start: 20120822, end: 20121108
  6. DYTIDE H [Concomitant]
     Indication: OEDEMA
     Dosage: 1 DF, QOD
     Route: 048
     Dates: start: 20121108

REACTIONS (5)
  - Death [Fatal]
  - Febrile infection [Not Recovered/Not Resolved]
  - Asthenia [Not Recovered/Not Resolved]
  - Bronchitis [Not Recovered/Not Resolved]
  - Oedema peripheral [Not Recovered/Not Resolved]
